FAERS Safety Report 4862046-9 (Version None)
Quarter: 2005Q4

REPORT INFORMATION
  Report Type: 
  Country: None (occurrence: None)
  Receive Date: 20051221
  Receipt Date: 20051213
  Transmission Date: 20060501
  Serious: Yes (Hospitalization, Other)
  Sender: FDA-Public Use
  Company Number: US-JNJFOC-20051004518

PATIENT
  Sex: Male
  Weight: 103.42 kg

DRUGS (9)
  1. REMICADE [Suspect]
     Dosage: 3 VIALS
     Route: 042
  2. REMICADE [Suspect]
     Indication: RHEUMATOID ARTHRITIS
     Dosage: 3 VIALS
     Route: 042
  3. PREDNISONE TAB [Concomitant]
     Dosage: OVER 6 MONTHS
  4. METHOTREXATE [Concomitant]
  5. METHOTREXATE [Concomitant]
  6. METHOTREXATE [Concomitant]
  7. LODINE [Concomitant]
  8. NAPROSYN [Concomitant]
  9. PLAQUENIL [Concomitant]

REACTIONS (5)
  - DIVERTICULITIS [None]
  - INFECTION [None]
  - RHEUMATOID ARTHRITIS [None]
  - SKIN INFECTION [None]
  - SURGERY [None]
